FAERS Safety Report 8813051 (Version 1)
Quarter: 2012Q4

REPORT INFORMATION
  Report Type: 
  Country: BR (occurrence: BR)
  Receive Date: 20120927
  Receipt Date: 20120927
  Transmission Date: 20130627
  Serious: Yes (Hospitalization)
  Sender: FDA-Public Use
  Company Number: BR-ASTRAZENECA-2012SE73257

PATIENT
  Age: 801 Month
  Sex: Male

DRUGS (5)
  1. CRESTOR [Suspect]
     Indication: BLOOD CHOLESTEROL INCREASED
     Route: 048
     Dates: start: 2010, end: 20120918
  2. CRESTOR [Suspect]
     Indication: BLOOD CHOLESTEROL INCREASED
     Route: 048
  3. BACTRIM [Concomitant]
     Indication: PROPHYLAXIS URINARY TRACT INFECTION
     Route: 048
  4. SOMALGIN [Concomitant]
     Indication: CARDIOVASCULAR EVENT PROPHYLAXIS
     Route: 048
  5. GLIFAGE [Concomitant]
     Indication: DIABETES MELLITUS
     Route: 048
     Dates: start: 2005

REACTIONS (1)
  - Gastrointestinal neoplasm [Unknown]
